FAERS Safety Report 26179275 (Version 1)
Quarter: 2025Q4

REPORT INFORMATION
  Report Type: Spontaneous
  Country: EU (occurrence: EU)
  Receive Date: 20251219
  Receipt Date: 20251219
  Transmission Date: 20260117
  Serious: Yes (Other)
  Sender: AUROBINDO
  Company Number: EU-AFSSAPS-AN2025001308

PATIENT
  Age: 21 Year
  Sex: Female
  Weight: 85 kg

DRUGS (4)
  1. METHYLPHENIDATE [Suspect]
     Active Substance: METHYLPHENIDATE
     Indication: Attention deficit hyperactivity disorder
     Dosage: 60 MILLIGRAM, ONCE A DAY
     Route: 061
     Dates: start: 20250702
  2. DULOXETINE [Suspect]
     Active Substance: DULOXETINE
     Indication: Depression
     Dosage: 60 MILLIGRAM, ONCE A DAY
     Route: 061
     Dates: start: 20250610
  3. PRAZEPAM [Suspect]
     Active Substance: PRAZEPAM
     Indication: Depression
     Dosage: 10 MILLIGRAM
     Route: 061
  4. VENLAFAXINE [4]
     Active Substance: VENLAFAXINE HYDROCHLORIDE
     Indication: Depression
     Dosage: 75 MILLIGRAM, ONCE A DAY
     Route: 061
     Dates: start: 20250121, end: 20250610

REACTIONS (2)
  - Hyperprolactinaemia [Not Recovered/Not Resolved]
  - Product supply issue [Not Recovered/Not Resolved]

NARRATIVE: CASE EVENT DATE: 20250610
